FAERS Safety Report 8755850 (Version 2)
Quarter: 2012Q4

REPORT INFORMATION
  Report Type: 
  Country: US (occurrence: US)
  Receive Date: 20120827
  Receipt Date: 20121008
  Transmission Date: 20130627
  Serious: Yes (Death)
  Sender: FDA-Public Use
  Company Number: US-BRISTOL-MYERS SQUIBB COMPANY-16888398

PATIENT
  Age: 64 Year
  Sex: Male

DRUGS (1)
  1. ABILIFY TABS 10 MG [Suspect]

REACTIONS (1)
  - Death [Fatal]
